FAERS Safety Report 23925096 (Version 1)
Quarter: 2024Q2

REPORT INFORMATION
  Report Type: Spontaneous
  Country: CN (occurrence: CN)
  Receive Date: 20240531
  Receipt Date: 20240531
  Transmission Date: 20240716
  Serious: Yes (Hospitalization)
  Sender: FDA-Public Use
  Company Number: CN-PFIZER INC-PV202400071433

PATIENT
  Age: 13 Year
  Sex: Male
  Weight: 38 kg

DRUGS (3)
  1. METHOTREXATE SODIUM [Suspect]
     Active Substance: METHOTREXATE SODIUM
     Indication: Neoplasm
     Dosage: 12 MG, WEEKLY
     Route: 037
     Dates: start: 20240510, end: 20240517
  2. METHOTREXATE SODIUM [Suspect]
     Active Substance: METHOTREXATE SODIUM
     Indication: Chemotherapy
  3. SODIUM CHLORIDE [Concomitant]
     Active Substance: SODIUM CHLORIDE
     Indication: Vehicle solution use
     Dosage: 5 ML, WEEKLY
     Route: 037
     Dates: start: 20240510, end: 20240517

REACTIONS (2)
  - Facial paralysis [Recovering/Resolving]
  - Drooling [Recovering/Resolving]

NARRATIVE: CASE EVENT DATE: 20240526
